FAERS Safety Report 6885997-2 (Version None)
Quarter: 2010Q3

REPORT INFORMATION
  Report Type: 
  Country: None (occurrence: None)
  Receive Date: 20100729
  Receipt Date: 20090110
  Transmission Date: 20110219
  Serious: Yes (Other)
  Sender: FDA-Public Use
  Company Number: US-PFIZER INC-2009150470

PATIENT
  Sex: Female

DRUGS (3)
  1. CELEBREX [Suspect]
     Indication: ARTHRITIS
  2. NAPROXEN SODIUM [Suspect]
  3. ACETYLSALICYLIC ACID SRT [Suspect]

REACTIONS (2)
  - DIVERTICULITIS [None]
  - MELAENA [None]
